FAERS Safety Report 7518086-4 (Version None)
Quarter: 2011Q2

REPORT INFORMATION
  Report Type: 
  Country: None (occurrence: None)
  Receive Date: 20110602
  Receipt Date: 20110525
  Transmission Date: 20111010
  Serious: Yes (Death, Hospitalization)
  Sender: FDA-Public Use
  Company Number: ZA-JNJFOC-20110512205

PATIENT
  Age: 11 Year
  Sex: Male

DRUGS (10)
  1. AMIKACIN [Suspect]
     Indication: LOWER RESPIRATORY TRACT INFECTION
     Route: 065
  2. MEROPENEM [Suspect]
     Indication: PRODUCT USED FOR UNKNOWN INDICATION
     Route: 065
  3. VANCOMYCIN [Suspect]
     Indication: LOWER RESPIRATORY TRACT INFECTION
     Route: 065
  4. VORICONAZOLE [Suspect]
     Indication: PRODUCT USED FOR UNKNOWN INDICATION
     Route: 065
  5. FLUCONAZOLE [Suspect]
     Indication: PRODUCT USED FOR UNKNOWN INDICATION
     Route: 065
  6. CLOXACILLIN SODIUM [Suspect]
     Indication: PRODUCT USED FOR UNKNOWN INDICATION
     Route: 065
  7. MEROPENEM [Suspect]
     Route: 065
  8. DORIBAX [Suspect]
     Indication: PRODUCT USED FOR UNKNOWN INDICATION
     Route: 041
  9. PIPERACILLIN [Suspect]
     Indication: LOWER RESPIRATORY TRACT INFECTION
     Route: 065
  10. LINEZOLID [Suspect]
     Indication: PRODUCT USED FOR UNKNOWN INDICATION
     Route: 065

REACTIONS (5)
  - RENAL IMPAIRMENT [None]
  - LOWER RESPIRATORY TRACT INFECTION [None]
  - DRUG ADMINISTERED TO PATIENT OF INAPPROPRIATE AGE [None]
  - DEATH [None]
  - LABORATORY TEST ABNORMAL [None]
